FAERS Safety Report 17652863 (Version 2)
Quarter: 2020Q2

REPORT INFORMATION
  Report Type: Spontaneous
  Country: US (occurrence: US)
  Receive Date: 20200409
  Receipt Date: 20200420
  Transmission Date: 20200713
  Serious: Yes (Death, Hospitalization)
  Sender: FDA-Public Use
  Company Number: US-TASMAN PHARMA, INC.-2020TSM00214

PATIENT
  Age: 66 Year
  Sex: Male
  Weight: 90.7 kg

DRUGS (5)
  1. CLOZAPINE. [Suspect]
     Active Substance: CLOZAPINE
     Indication: SCHIZOPHRENIA
     Dosage: 100 MG, 3X/DAY
     Route: 048
     Dates: end: 2018
  2. CLOZAPINE. [Suspect]
     Active Substance: CLOZAPINE
     Dosage: 100 MG, 3X/DAY
     Route: 048
     Dates: start: 201807
  3. MEMANTINE. [Concomitant]
     Active Substance: MEMANTINE
  4. CLONAZEPAM. [Concomitant]
     Active Substance: CLONAZEPAM
  5. TRAZODONE [Concomitant]
     Active Substance: TRAZODONE HYDROCHLORIDE

REACTIONS (2)
  - Respiratory failure [Fatal]
  - Psychotic disorder [Unknown]

NARRATIVE: CASE EVENT DATE: 201807
